FAERS Safety Report 4674080-2 (Version None)
Quarter: 2005Q2

REPORT INFORMATION
  Report Type: 
  Country: None (occurrence: None)
  Receive Date: 20050524
  Receipt Date: 20050524
  Transmission Date: 20051028
  Serious: No
  Sender: FDA-Public Use
  Company Number: None

PATIENT
  Sex: Female
  Weight: 60.5 kg

DRUGS (1)
  1. GEMCITABINE [Suspect]
     Dosage: 1000 MG/M2 IV OVER 30 MIN Q WK X 7
     Route: 042
     Dates: start: 20050330

REACTIONS (14)
  - BUNDLE BRANCH BLOCK RIGHT [None]
  - CARDIAC FAILURE CONGESTIVE [None]
  - ELECTROCARDIOGRAM T WAVE INVERSION [None]
  - ESCHERICHIA SEPSIS [None]
  - HYPOTENSION [None]
  - LUNG INFILTRATION [None]
  - MYOCARDIAL INFARCTION [None]
  - PLEURAL EFFUSION [None]
  - PULMONARY CONGESTION [None]
  - PULMONARY VASCULAR DISORDER [None]
  - RIGHT VENTRICULAR SYSTOLIC PRESSURE INCREASED [None]
  - SKIN DISORDER [None]
  - SKIN ULCER [None]
  - VENTRICULAR HYPOKINESIA [None]
